FAERS Safety Report 20237428 (Version 1)
Quarter: 2021Q4

REPORT INFORMATION
  Report Type: Spontaneous
  Country: AU (occurrence: AU)
  Receive Date: 20211228
  Receipt Date: 20211228
  Transmission Date: 20220304
  Serious: Yes (Hospitalization)
  Sender: FDA-Public Use
  Company Number: AU-LUNDBECK-DKLU3042518

PATIENT
  Age: 30 Year
  Sex: Male

DRUGS (17)
  1. REXULTI [Suspect]
     Active Substance: BREXPIPRAZOLE
     Indication: Product used for unknown indication
     Dosage: 2 MG
     Route: 065
     Dates: start: 2018
  2. REXULTI [Suspect]
     Active Substance: BREXPIPRAZOLE
     Dosage: 1 MG
     Route: 065
  3. ABILIFY [Suspect]
     Active Substance: ARIPIPRAZOLE
     Indication: Blood prolactin increased
     Dosage: 10 MG
     Route: 065
     Dates: start: 2013
  4. ABILIFY [Suspect]
     Active Substance: ARIPIPRAZOLE
     Dosage: 10 MG
     Route: 065
     Dates: start: 2015
  5. ABILIFY [Suspect]
     Active Substance: ARIPIPRAZOLE
     Dosage: 5 MG
     Route: 065
     Dates: start: 2016
  6. ABILIFY [Suspect]
     Active Substance: ARIPIPRAZOLE
     Dosage: 10 MG
     Route: 065
     Dates: start: 2017
  7. ABILIFY [Suspect]
     Active Substance: ARIPIPRAZOLE
     Dosage: 5 MG
     Route: 065
     Dates: start: 2017
  8. QUETIAPINE [Suspect]
     Active Substance: QUETIAPINE
     Indication: Product used for unknown indication
     Dosage: UNK
     Route: 065
     Dates: start: 2013
  9. INVEGA SUSTENNA [Suspect]
     Active Substance: PALIPERIDONE PALMITATE
     Indication: Product used for unknown indication
     Dosage: 3 MG
     Route: 065
     Dates: start: 2015
  10. INVEGA SUSTENNA [Suspect]
     Active Substance: PALIPERIDONE PALMITATE
     Dosage: 75 MG
     Route: 065
     Dates: start: 2016
  11. INVEGA SUSTENNA [Suspect]
     Active Substance: PALIPERIDONE PALMITATE
     Dosage: 25 MG
     Route: 065
     Dates: start: 2017, end: 2018
  12. INVEGA SUSTENNA [Suspect]
     Active Substance: PALIPERIDONE PALMITATE
     Dosage: UNK
     Route: 065
     Dates: start: 2018
  13. PALIPERIDONE [Suspect]
     Active Substance: PALIPERIDONE
     Indication: Product used for unknown indication
     Dosage: 150 MG
     Route: 065
     Dates: start: 2014
  14. PALIPERIDONE [Suspect]
     Active Substance: PALIPERIDONE
     Dosage: 100 MG
     Route: 065
     Dates: start: 2015
  15. PALIPERIDONE [Suspect]
     Active Substance: PALIPERIDONE
     Dosage: 75 MG
     Route: 065
     Dates: start: 2016
  16. PALIPERIDONE [Suspect]
     Active Substance: PALIPERIDONE
     Dosage: 50 MG
     Route: 065
     Dates: start: 2016
  17. PALIPERIDONE [Suspect]
     Active Substance: PALIPERIDONE
     Dosage: 25 MG
     Route: 065
     Dates: start: 2017

REACTIONS (13)
  - Angina unstable [Unknown]
  - Cardiac arrest [Unknown]
  - Orthostatic hypertension [Unknown]
  - Sinus node dysfunction [Unknown]
  - Condition aggravated [Unknown]
  - Chest discomfort [Not Recovered/Not Resolved]
  - Chest pain [Unknown]
  - Hypotension [Unknown]
  - Presyncope [Unknown]
  - Syncope [Unknown]
  - Nausea [Unknown]
  - Dizziness postural [Not Recovered/Not Resolved]
  - Dizziness [Unknown]

NARRATIVE: CASE EVENT DATE: 20180101
